FAERS Safety Report 5045002-X (Version None)
Quarter: 2006Q3

REPORT INFORMATION
  Report Type: 
  Country: None (occurrence: None)
  Receive Date: 20060705
  Receipt Date: 20060621
  Transmission Date: 20061208
  Serious: Yes (Other)
  Sender: FDA-Public Use
  Company Number: 2006-127

PATIENT
  Age: 71 Year
  Sex: Male

DRUGS (3)
  1. CITALOPRAM [Suspect]
     Indication: DEPRESSION
     Dosage: 20MG DAILY ORALLY
     Route: 048
     Dates: start: 20060511, end: 20060512
  2. LISINOPRIL [Concomitant]
  3. PENICILLAMINE [Concomitant]

REACTIONS (2)
  - CONFUSIONAL STATE [None]
  - HYPONATRAEMIA [None]
